FAERS Safety Report 8591552-9 (Version None)
Quarter: 2012Q3

REPORT INFORMATION
  Report Type: 
  Country: None (occurrence: None)
  Receive Date: 20120814
  Receipt Date: 20120809
  Transmission Date: 20120928
  Serious: No
  Sender: FDA-Public Use
  Company Number: US-PFIZER INC-2012195706

PATIENT
  Sex: Female

DRUGS (3)
  1. GABAPENTIN [Suspect]
     Dosage: 300 MG, DAILY
     Route: 048
  2. GABAPENTIN [Suspect]
     Dosage: 300 MG, 2X/DAY
     Route: 048
  3. GABAPENTIN [Suspect]
     Dosage: 300 MG, 3X/DAY
     Route: 048
     Dates: start: 20120808

REACTIONS (2)
  - BLEPHAROSPASM [None]
  - EYE MOVEMENT DISORDER [None]
